FAERS Safety Report 9721152 (Version 4)
Quarter: 2017Q4

REPORT INFORMATION
  Report Type: Spontaneous
  Country: US (occurrence: US)
  Receive Date: 20131129
  Receipt Date: 20171013
  Transmission Date: 20180321
  Serious: Yes (Hospitalization, Other)
  Sender: FDA-Public Use
  Company Number: US-009507513-1311USA011300

PATIENT
  Sex: Female

DRUGS (5)
  1. FOSAMAX [Suspect]
     Active Substance: ALENDRONATE SODIUM
     Indication: OSTEOPOROSIS
     Dosage: 70 MG, QW
     Route: 048
     Dates: end: 2007
  2. FLUOXETINE [Concomitant]
     Active Substance: FLUOXETINE HYDROCHLORIDE
     Indication: DEPRESSION
     Dosage: UNK
     Route: 048
     Dates: start: 1996
  3. FOSAMAX [Suspect]
     Active Substance: ALENDRONATE SODIUM
     Dosage: UNK UNK, UNKNOWN
     Route: 048
     Dates: start: 199806, end: 200706
  4. FOSAMAX PLUS D [Suspect]
     Active Substance: ALENDRONATE SODIUM\CHOLECALCIFEROL
     Indication: OSTEOPOROSIS
     Dosage: 70 MG, QW
     Route: 048
     Dates: start: 200706, end: 200811
  5. ALENDRONATE SODIUM. [Suspect]
     Active Substance: ALENDRONATE SODIUM
     Indication: OSTEOPOROSIS
     Dosage: 70 MG, QW
     Route: 048
     Dates: start: 200811, end: 201009

REACTIONS (17)
  - Calcium deficiency [Unknown]
  - Impaired healing [Unknown]
  - Wrist surgery [Unknown]
  - Femur fracture [Unknown]
  - Wrist fracture [Unknown]
  - Back pain [Not Recovered/Not Resolved]
  - Incision site inflammation [Unknown]
  - Femur fracture [Recovered/Resolved]
  - Herpes zoster [Unknown]
  - Impaired healing [Unknown]
  - Arthritis [Unknown]
  - Oral surgery [Unknown]
  - Hypertension [Unknown]
  - Osteoarthritis [Unknown]
  - Meniscus injury [Unknown]
  - Intramedullary rod insertion [Recovered/Resolved]
  - Vitamin D deficiency [Unknown]

NARRATIVE: CASE EVENT DATE: 2000
